FAERS Safety Report 10258546 (Version 3)
Quarter: 2014Q3

REPORT INFORMATION
  Report Type: Spontaneous
  Country: DE (occurrence: DE)
  Receive Date: 20140625
  Receipt Date: 20140919
  Transmission Date: 20150326
  Serious: Yes (Other)
  Sender: FDA-Public Use
  Company Number: PHHY2014DE077500

PATIENT
  Sex: Male

DRUGS (2)
  1. ZOMETA [Suspect]
     Active Substance: ZOLEDRONIC ACID
     Indication: OSTEOPOROSIS
  2. ZOMETA [Suspect]
     Active Substance: ZOLEDRONIC ACID
     Indication: OFF LABEL USE

REACTIONS (1)
  - Compression fracture [Unknown]
